FAERS Safety Report 18052632 (Version 1)
Quarter: 2020Q3

REPORT INFORMATION
  Report Type: Spontaneous
  Country: US (occurrence: US)
  Receive Date: 20200722
  Receipt Date: 20200722
  Transmission Date: 20201103
  Serious: Yes (Death, Hospitalization, Other)
  Sender: FDA-Public Use
  Company Number: US-ABBVIE-20K-163-3491977-00

PATIENT
  Age: 86 Year
  Sex: Male

DRUGS (1)
  1. IMBRUVICA [Suspect]
     Active Substance: IBRUTINIB
     Indication: B-CELL LYMPHOMA
     Route: 048
     Dates: start: 2019, end: 2019

REACTIONS (6)
  - Hospitalisation [Unknown]
  - Cardiac disorder [Fatal]
  - Multiple organ dysfunction syndrome [Fatal]
  - White blood cell count abnormal [Unknown]
  - Lymphoma [Fatal]
  - Loss of consciousness [Unknown]

NARRATIVE: CASE EVENT DATE: 2019
